FAERS Safety Report 5640629-6 (Version None)
Quarter: 2008Q1

REPORT INFORMATION
  Report Type: 
  Country: None (occurrence: None)
  Receive Date: 20080225
  Receipt Date: 20080212
  Transmission Date: 20080703
  Serious: Yes (Hospitalization)
  Sender: FDA-Public Use
  Company Number: LTI2008A00047

PATIENT
  Age: 56 Year
  Sex: Female

DRUGS (5)
  1. ACTOS [Suspect]
     Indication: DIABETES MELLITUS
     Dosage: 45 MG (45 MG, 1 IN 1 D) ORAL
     Route: 048
     Dates: start: 20070401, end: 20071219
  2. DIAMICRON (GLICLAZIDE) [Concomitant]
  3. METFORMINE (METFORMIN HYDROCHLORIDE) [Concomitant]
  4. ASPIRIN [Concomitant]
  5. ROSUVASTATIN (ROSUVASTATIN) [Concomitant]

REACTIONS (4)
  - ASTHENIA [None]
  - BRADYCARDIA [None]
  - DIZZINESS [None]
  - VENTRICULAR EXTRASYSTOLES [None]
